FAERS Safety Report 14435155 (Version 1)
Quarter: 2018Q1

REPORT INFORMATION
  Report Type: Spontaneous
  Country: DE (occurrence: DE)
  Receive Date: 20180125
  Receipt Date: 20180125
  Transmission Date: 20180509
  Serious: Yes (Other)
  Sender: FDA-Public Use
  Company Number: DE-SUN PHARMACEUTICAL INDUSTRIES LTD-2018RR-161264

PATIENT
  Age: 28 Year
  Sex: Male
  Weight: 75 kg

DRUGS (1)
  1. CIPROFLOXACIN. [Suspect]
     Active Substance: CIPROFLOXACIN
     Indication: PROSTATITIS
     Dosage: 2X TGL 500MG
     Route: 048
     Dates: start: 20161121, end: 20161226

REACTIONS (12)
  - Angina pectoris [Recovered/Resolved]
  - Depression [Recovering/Resolving]
  - Dissociation [Recovered/Resolved with Sequelae]
  - Suicide attempt [Recovered/Resolved]
  - Fatigue [Not Recovered/Not Resolved]
  - Hepatic pain [Recovered/Resolved]
  - Renal pain [Recovered/Resolved]
  - Arrhythmia [Recovered/Resolved]
  - Disturbance in attention [Not Recovered/Not Resolved]
  - Anxiety [Recovered/Resolved with Sequelae]
  - Psychotic disorder [Recovered/Resolved]
  - Memory impairment [Not Recovered/Not Resolved]

NARRATIVE: CASE EVENT DATE: 20161121
